FAERS Safety Report 12594010 (Version 1)
Quarter: 2016Q3

REPORT INFORMATION
  Report Type: Spontaneous
  Country: US (occurrence: US)
  Receive Date: 20160726
  Receipt Date: 20160726
  Transmission Date: 20161109
  Serious: No
  Sender: FDA-Public Use
  Company Number: US-UNITED THERAPEUTICS-UNT-2015-014159

PATIENT
  Age: 11 Year
  Sex: Female
  Weight: 38.95 kg

DRUGS (6)
  1. TYVASO [Suspect]
     Active Substance: TREPROSTINIL
     Indication: PULMONARY HYPERTENSION
     Dosage: 78 ?G, QID
     Dates: start: 20150318
  2. TYVASO [Suspect]
     Active Substance: TREPROSTINIL
     Dosage: 13-15 BREATHS, QID
  3. ADCIRCA [Concomitant]
     Active Substance: TADALAFIL
     Indication: PRODUCT USED FOR UNKNOWN INDICATION
     Route: 065
  4. LETAIRIS [Suspect]
     Active Substance: AMBRISENTAN
     Indication: HEART DISEASE CONGENITAL
     Dosage: 5 MG, QD
     Route: 065
     Dates: start: 20150214
  5. TYVASO [Suspect]
     Active Substance: TREPROSTINIL
     Dosage: 78-90 ?G, QID
  6. TYVASO [Suspect]
     Active Substance: TREPROSTINIL
     Dosage: UNK

REACTIONS (6)
  - Cough [Not Recovered/Not Resolved]
  - Chest discomfort [Unknown]
  - Dyspnoea [Unknown]
  - Product use issue [Unknown]
  - Therapy non-responder [Unknown]
  - Fatigue [Unknown]

NARRATIVE: CASE EVENT DATE: 201511
